FAERS Safety Report 8189065 (Version 3)
Quarter: 2012Q4

REPORT INFORMATION
  Report Type: Report from Study
  Country: SE (occurrence: SE)
  Receive Date: 20111019
  Receipt Date: 20121002
  Transmission Date: 20130627
  Serious: Yes (Hospitalization)
  Sender: FDA-Public Use
  Company Number: SE-BRISTOL-MYERS SQUIBB COMPANY-16164188

PATIENT
  Age: 61 Year
  Sex: Female

DRUGS (3)
  1. BLINDED: SAXAGLIPTIN [Suspect]
     Indication: TYPE 2 DIABETES MELLITUS
     Dosage: Interrupted on 04Oct2011
     Dates: start: 20100920
  2. METFORMIN HCL [Suspect]
     Indication: TYPE 2 DIABETES MELLITUS
     Dosage: UNK-10May11,2000mg
10May11-Unk,1500mg
  3. BLINDED: PLACEBO [Suspect]
     Indication: TYPE 2 DIABETES MELLITUS
     Dosage: Interrupted on 04Oct2011
     Dates: start: 20100920

REACTIONS (1)
  - Pancreatitis [Recovered/Resolved]
